FAERS Safety Report 17474358 (Version 2)
Quarter: 2021Q3

REPORT INFORMATION
  Report Type: Report from Study
  Country: JP (occurrence: JP)
  Receive Date: 20200228
  Receipt Date: 20210728
  Transmission Date: 20211014
  Serious: Yes (Hospitalization, Other)
  Sender: FDA-Public Use
  Company Number: JP-JNJFOC-20190624377

PATIENT
  Age: 26 Year
  Sex: Male
  Weight: 49.4 kg

DRUGS (48)
  1. AZANIN [Concomitant]
     Active Substance: AZATHIOPRINE
  2. BIO?THREE [Concomitant]
     Active Substance: HERBALS
  3. LOXOPROFEN [Concomitant]
     Active Substance: LOXOPROFEN
  4. GASTROM [Concomitant]
     Active Substance: ECABET SODIUM
  5. ROPION [Concomitant]
     Active Substance: FLURBIPROFEN AXETIL
  6. ACELIO [Concomitant]
     Active Substance: ACETAMINOPHEN
  7. CEFMETAZOLE SODIUM [Concomitant]
     Active Substance: CEFMETAZOLE SODIUM
     Indication: CROHN^S DISEASE
     Dates: start: 20180531, end: 20180601
  8. ZENTACORT [Concomitant]
     Active Substance: BUDESONIDE
     Indication: CROHN^S DISEASE
  9. CIPROXAN [Concomitant]
     Active Substance: CIPROFLOXACIN
  10. SENNOSIDE                          /00571901/ [Concomitant]
     Active Substance: SENNOSIDES A AND B
  11. BIOFERMIN                          /07958301/ [Concomitant]
  12. MAGNESIUM OXIDE. [Concomitant]
     Active Substance: MAGNESIUM OXIDE
  13. STELARA [Suspect]
     Active Substance: USTEKINUMAB
     Dosage: USTEKINUMAB(GENETICAL RECOMBINATION):45 MG
     Route: 058
     Dates: start: 20190518, end: 20190518
  14. STELARA [Suspect]
     Active Substance: USTEKINUMAB
     Dosage: USTEKINUMAB(GENETICAL RECOMBINATION):45 MG
     Route: 058
     Dates: start: 20210410, end: 20210410
  15. STELARA [Suspect]
     Active Substance: USTEKINUMAB
     Dosage: USTEKINUMAB(GENETICAL RECOMBINATION):45 MG
     Route: 058
     Dates: start: 20190907, end: 20190907
  16. PREDONINE [Concomitant]
     Active Substance: PREDNISOLONE
  17. KAYTWO N [Concomitant]
     Active Substance: MENATETRENONE
  18. ISOTONIC SODIUM CHLORIDE SOLUTION [Concomitant]
     Active Substance: SODIUM CHLORIDE
  19. STELARA [Suspect]
     Active Substance: USTEKINUMAB
     Dosage: USTEKINUMAB(GENETICAL RECOMBINATION):45 MG
     Route: 058
     Dates: start: 20190323, end: 20190323
  20. STELARA [Suspect]
     Active Substance: USTEKINUMAB
     Dosage: USTEKINUMAB(GENETICAL RECOMBINATION):45 MG
     Route: 058
     Dates: start: 20191002, end: 20191002
  21. STELARA [Suspect]
     Active Substance: USTEKINUMAB
     Dosage: USTEKINUMAB(GENETICAL RECOMBINATION):45 MG
     Route: 058
     Dates: start: 20201219, end: 20201219
  22. PENTASA [Concomitant]
     Active Substance: MESALAMINE
  23. PHYSIO 140 [Concomitant]
     Active Substance: CALCIUM GLUCONATE\DEXTROSE\MAGNESIUM CHLORIDE\POTASSIUM CHLORIDE\SODIUM ACETATE\SODIUM CHLORIDE\TRISODIUM CITRATE DIHYDRATE
  24. SOLDEM 3A [Concomitant]
     Active Substance: CARBOHYDRATES\POTASSIUM CHLORIDE\SODIUM CHLORIDE\SODIUM LACTATE
  25. ASCORBIC ACID. [Concomitant]
     Active Substance: ASCORBIC ACID
  26. STELARA [Suspect]
     Active Substance: USTEKINUMAB
     Dosage: USTEKINUMAB(GENETICAL RECOMBINATION):130 MG
     Route: 042
     Dates: start: 20190126
  27. STELARA [Suspect]
     Active Substance: USTEKINUMAB
     Dosage: USTEKINUMAB(GENETICAL RECOMBINATION):45 MG
     Route: 058
     Dates: start: 20200111, end: 20200111
  28. STELARA [Suspect]
     Active Substance: USTEKINUMAB
     Dosage: USTEKINUMAB(GENETICAL RECOMBINATION):45 MG
     Route: 058
     Dates: start: 20201024, end: 20201024
  29. STELARA [Suspect]
     Active Substance: USTEKINUMAB
     Dosage: USTEKINUMAB(GENETICAL RECOMBINATION):45 MG
     Route: 058
     Dates: start: 20210605, end: 20210605
  30. FLAGYL [Concomitant]
     Active Substance: METRONIDAZOLE\METRONIDAZOLE HYDROCHLORIDE
  31. BIOFERMIN R [Concomitant]
     Active Substance: DIETARY SUPPLEMENT\PROBIOTICS
  32. FERROUS SODIUM CITRATE [Concomitant]
     Active Substance: SODIUM FERROUS CITRATE
  33. GASTER [Concomitant]
     Active Substance: FAMOTIDINE
  34. VITAMEDIN                          /00176001/ [Concomitant]
     Active Substance: CYANOCOBALAMIN\PYRIDOXINE HYDROCHLORIDE\THIAMINE
  35. BFLUID [Concomitant]
     Active Substance: AMINO ACIDS\DEXTROSE\ELECTROLYTES NOS\VITAMINS
  36. STELARA [Suspect]
     Active Substance: USTEKINUMAB
     Indication: CROHN^S DISEASE
     Dosage: USTEKINUMAB(GENETICAL RECOMBINATION):130 MG
     Route: 042
     Dates: start: 20180609
  37. STELARA [Suspect]
     Active Substance: USTEKINUMAB
     Dosage: USTEKINUMAB(GENETICAL RECOMBINATION):45 MG
     Route: 058
     Dates: start: 20200704, end: 20200704
  38. REBAMIPIDE [Concomitant]
     Active Substance: REBAMIPIDE
  39. LEVOFLOXACIN. [Concomitant]
     Active Substance: LEVOFLOXACIN
  40. STELARA [Suspect]
     Active Substance: USTEKINUMAB
     Dosage: USTEKINUMAB(GENETICAL RECOMBINATION):45 MG
     Route: 058
     Dates: start: 20190717, end: 20190717
  41. STELARA [Suspect]
     Active Substance: USTEKINUMAB
     Dosage: USTEKINUMAB(GENETICAL RECOMBINATION):45 MG
     Route: 058
     Dates: start: 20200313, end: 20200313
  42. STELARA [Suspect]
     Active Substance: USTEKINUMAB
     Dosage: USTEKINUMAB(GENETICAL RECOMBINATION):45 MG
     Route: 058
     Dates: start: 20200509, end: 20200509
  43. STELARA [Suspect]
     Active Substance: USTEKINUMAB
     Dosage: USTEKINUMAB(GENETICAL RECOMBINATION):45 MG
     Route: 058
     Dates: start: 20200829, end: 20200829
  44. STELARA [Suspect]
     Active Substance: USTEKINUMAB
     Dosage: USTEKINUMAB(GENETICAL RECOMBINATION):45 MG
     Route: 058
     Dates: start: 20210213, end: 20210213
  45. FENTANYL. [Concomitant]
     Active Substance: FENTANYL
     Dosage: FENTANYL CITRATE:0.1MG
     Route: 065
  46. PANTOSIN [Concomitant]
     Active Substance: PANTETHINE
  47. PANTOL                             /00223901/ [Concomitant]
     Active Substance: PANTHENOL
  48. ADELAVIN NO.9 [Concomitant]

REACTIONS (3)
  - Upper respiratory tract inflammation [Recovering/Resolving]
  - Large intestinal stenosis [Recovered/Resolved]
  - Anal abscess [Recovered/Resolved]

NARRATIVE: CASE EVENT DATE: 20180616
